FAERS Safety Report 4822171-5 (Version None)
Quarter: 2005Q4

REPORT INFORMATION
  Report Type: 
  Country: None (occurrence: None)
  Receive Date: 20051103
  Receipt Date: 20051021
  Transmission Date: 20060501
  Serious: Yes (Other)
  Sender: FDA-Public Use
  Company Number: 2005145073

PATIENT
  Age: 58 Year
  Sex: Male
  Weight: 145.151 kg

DRUGS (3)
  1. NEOSPORIN [Suspect]
     Indication: LACERATION
     Dosage: A SMALL DAB ONE TIME, TOPICAL
     Route: 061
     Dates: start: 20050701, end: 20050701
  2. ANTIBIOTICS FOR TOPICAL USE (ANTIBIOTICS FOR TOPICAL USE) [Suspect]
     Indication: LACERATION
     Dosage: UNSPECIFIED, TOPICAL
     Route: 061
  3. HYDROCORTISONE [Concomitant]

REACTIONS (6)
  - DEPRESSED LEVEL OF CONSCIOUSNESS [None]
  - DYSPNOEA [None]
  - FLUSHING [None]
  - PARAESTHESIA [None]
  - SWELLING FACE [None]
  - THROAT TIGHTNESS [None]
